FAERS Safety Report 6429734-4 (Version None)
Quarter: 2009Q4

REPORT INFORMATION
  Report Type: 
  Country: None (occurrence: None)
  Receive Date: 20091103
  Receipt Date: 20091019
  Transmission Date: 20100525
  Serious: Yes (Hospitalization)
  Sender: FDA-Public Use
  Company Number: 02100-JPN-06-0667

PATIENT
  Age: 76 Year
  Sex: Male
  Weight: 59.1 kg

DRUGS (5)
  1. PLETAL [Suspect]
     Indication: CEREBRAL INFARCTION
     Dosage: 81 MG, QD ORAL
     Route: 048
     Dates: start: 20051207, end: 20061226
  2. LAXOOBERON (SODIUM PICOSULFATE) [Concomitant]
  3. ALLOPURINOL [Concomitant]
  4. NORVASC [Concomitant]
  5. ASPIRIN [Suspect]

REACTIONS (3)
  - ASTHENIA [None]
  - HYPOAESTHESIA [None]
  - INTERMITTENT CLAUDICATION [None]
